FAERS Safety Report 9291514 (Version 1)
Quarter: 2013Q2

REPORT INFORMATION
  Report Type: Spontaneous
  Country: IL (occurrence: IL)
  Receive Date: 20130515
  Receipt Date: 20130515
  Transmission Date: 20140414
  Serious: Yes (Hospitalization)
  Sender: FDA-Public Use
  Company Number: IL-ELI_LILLY_AND_COMPANY-IL201302001898

PATIENT
  Age: 63 Year
  Sex: Female
  Weight: 51 kg

DRUGS (3)
  1. FORTEO [Suspect]
     Indication: FRACTURE NONUNION
     Dosage: 20 UG, QD
     Route: 058
     Dates: start: 20120901, end: 20130101
  2. EUTHYROX [Concomitant]
     Dosage: 75 MEQ, UNK
     Route: 048
     Dates: start: 1998
  3. LIPITOR [Concomitant]
     Dosage: 10 MG, QD
     Route: 048
     Dates: start: 2008

REACTIONS (15)
  - Arrhythmia [Unknown]
  - Hypertension [Unknown]
  - Heart rate irregular [Unknown]
  - Chest pain [Unknown]
  - Hypercalciuria [Unknown]
  - Spinal pain [Unknown]
  - Malaise [Unknown]
  - Asthenia [Unknown]
  - Vasodilatation [Unknown]
  - Blood lactate dehydrogenase increased [Unknown]
  - Off label use [Unknown]
  - Myalgia [Unknown]
  - Bone pain [Unknown]
  - Heart rate increased [Unknown]
  - Dyspnoea [Unknown]
